FAERS Safety Report 6310982-9 (Version None)
Quarter: 2009Q3

REPORT INFORMATION
  Report Type: 
  Country: None (occurrence: None)
  Receive Date: 20090817
  Receipt Date: 20090812
  Transmission Date: 20100115
  Serious: Yes (Hospitalization)
  Sender: FDA-Public Use
  Company Number: US-BIOGENIDEC-2009BI025456

PATIENT
  Age: 50 Year
  Sex: Female

DRUGS (2)
  1. TYSABRI [Suspect]
     Indication: MULTIPLE SCLEROSIS
     Route: 042
     Dates: start: 20050224, end: 20050201
  2. TYSABRI [Suspect]
     Route: 042
     Dates: start: 20090617

REACTIONS (6)
  - DYSPNOEA [None]
  - DYSSTASIA [None]
  - HYPERTENSION [None]
  - MULTIPLE SCLEROSIS RELAPSE [None]
  - PLEURAL EFFUSION [None]
  - URINARY RETENTION [None]
